FAERS Safety Report 8469259-8 (Version None)
Quarter: 2012Q2

REPORT INFORMATION
  Report Type: 
  Country: None (occurrence: None)
  Receive Date: 20120620
  Receipt Date: 20120605
  Transmission Date: 20120825
  Serious: Yes (Other)
  Sender: FDA-Public Use
  Company Number: DSJ-2012-10098

PATIENT
  Age: 70 Year
  Sex: Female

DRUGS (5)
  1. ACETYLCYSTEINE (ACETYLCYSTEINE) (ACETYLCYSTEINE) [Concomitant]
  2. LEXATIN (BROMAZEPAM) (BROMAZEPAM) [Concomitant]
  3. LEVOFLOXACIN [Suspect]
     Indication: BRONCHITIS
     Dosage: 500MG (500 MG,1 IN 1 D),PER ORAL
     Route: 048
     Dates: start: 20120526
  4. OLMESARTAN MEDOXOMIL [Suspect]
     Indication: HYPERTENSION
     Dosage: 20 MG (20 MG,1 IN 1 D),PER ORAL
     Route: 048
     Dates: start: 20120501
  5. TIMOLOL (TIMOLOL) (TIMOLOL) [Concomitant]

REACTIONS (3)
  - HYPERTENSIVE CRISIS [None]
  - BRONCHITIS [None]
  - DRUG INTERACTION [None]
